FAERS Safety Report 8459453 (Version 3)
Quarter: 2013Q4

REPORT INFORMATION
  Report Type: Spontaneous
  Country: US (occurrence: US)
  Receive Date: 20120314
  Receipt Date: 20131217
  Transmission Date: 20140711
  Serious: No
  Sender: FDA-Public Use
  Company Number: US-ASTRAZENECA-2011SE45606

PATIENT
  Age: 65 Year
  Sex: Female
  Weight: 64.4 kg

DRUGS (13)
  1. NEXIUM [Suspect]
     Route: 048
  2. NEXIUM [Suspect]
     Route: 048
  3. NEXIUM [Suspect]
     Route: 048
  4. TOPROL XL [Suspect]
     Indication: PALPITATIONS
     Route: 048
  5. TOPROL XL [Suspect]
     Indication: PALPITATIONS
     Route: 048
  6. TOPROL XL [Suspect]
     Indication: PALPITATIONS
     Route: 048
  7. TOPROL XL [Suspect]
     Indication: PALPITATIONS
     Route: 048
  8. PRILOSEC [Suspect]
     Route: 048
  9. Z-PACK [Concomitant]
  10. MICRODANTIN [Concomitant]
     Indication: URINARY TRACT INFECTION
  11. LORAZEPAM [Concomitant]
     Indication: ANXIETY
  12. LORAZEPAM [Concomitant]
     Indication: PANIC DISORDER
  13. CALTRATE [Concomitant]

REACTIONS (16)
  - Lower respiratory tract infection [Unknown]
  - Cough [Unknown]
  - Flushing [Unknown]
  - Cardiac flutter [Recovered/Resolved]
  - Palpitations [Not Recovered/Not Resolved]
  - Pyrexia [Unknown]
  - Temperature intolerance [Unknown]
  - Paranasal sinus hypersecretion [Unknown]
  - Gastrooesophageal reflux disease [Unknown]
  - Arrhythmia [Unknown]
  - Palpitations [Not Recovered/Not Resolved]
  - Dyspepsia [Unknown]
  - Dyspepsia [Unknown]
  - Headache [Unknown]
  - Nausea [Unknown]
  - Drug ineffective [Unknown]
